FAERS Safety Report 6005700-8 (Version None)
Quarter: 2008Q4

REPORT INFORMATION
  Report Type: 
  Country: None (occurrence: None)
  Receive Date: 20081217
  Receipt Date: 20081125
  Transmission Date: 20090506
  Serious: No
  Sender: FDA-Public Use
  Company Number: US-BAYER-200839674NA

PATIENT
  Age: 45 Year
  Sex: Female

DRUGS (2)
  1. YAZ [Suspect]
     Indication: CONTRACEPTION
     Route: 048
     Dates: start: 20080701
  2. YASMIN [Suspect]
     Route: 048

REACTIONS (2)
  - HEADACHE [None]
  - MOOD ALTERED [None]
